FAERS Safety Report 6682575-5 (Version None)
Quarter: 2010Q2

REPORT INFORMATION
  Report Type: 
  Country: None (occurrence: None)
  Receive Date: 20100415
  Receipt Date: 20100406
  Transmission Date: 20101027
  Serious: Yes (Other)
  Sender: FDA-Public Use
  Company Number: BR-ASTRAZENECA-2010SE15135

PATIENT
  Age: 83 Year
  Sex: Female
  Weight: 65 kg

DRUGS (4)
  1. ATACAND [Suspect]
     Indication: HYPERTENSION
     Dosage: BID
     Route: 048
     Dates: start: 20060101
  2. SEROQUEL XR [Suspect]
     Indication: RESTLESSNESS
     Route: 048
     Dates: start: 20100101
  3. SEROQUEL XR [Suspect]
     Indication: DEMENTIA ALZHEIMER'S TYPE
     Route: 048
     Dates: start: 20100101
  4. EXELON [Concomitant]
     Indication: DEMENTIA ALZHEIMER'S TYPE
     Route: 061
     Dates: start: 20100101

REACTIONS (4)
  - DEMENTIA ALZHEIMER'S TYPE [None]
  - FEMUR FRACTURE [None]
  - HALLUCINATION [None]
  - OFF LABEL USE [None]
